FAERS Safety Report 12640107 (Version 1)
Quarter: 2016Q3

REPORT INFORMATION
  Report Type: Spontaneous
  Country: US (occurrence: None)
  Receive Date: 20160809
  Receipt Date: 20160809
  Transmission Date: 20161109
  Serious: Yes (Other)
  Sender: FDA-Public Use
  Company Number: None

PATIENT
  Age: 52 Year
  Sex: Female
  Weight: 72.58 kg

DRUGS (1)
  1. MIRENA [Suspect]
     Active Substance: LEVONORGESTREL
     Indication: ENDOMETRIAL HYPERPLASIA
     Dosage: 52 MG LAST 5 YEARS UTERUS
     Route: 015
     Dates: start: 20160804, end: 20160808

REACTIONS (8)
  - Abdominal pain [None]
  - Complication of device insertion [None]
  - Diarrhoea [None]
  - Headache [None]
  - Pyrexia [None]
  - Back pain [None]
  - Pelvic pain [None]
  - Pain in extremity [None]

NARRATIVE: CASE EVENT DATE: 20160804
